FAERS Safety Report 8211505-X (Version None)
Quarter: 2012Q1

REPORT INFORMATION
  Report Type: 
  Country: None (occurrence: None)
  Receive Date: 20120315
  Receipt Date: 20120313
  Transmission Date: 20120608
  Serious: Yes (Hospitalization, Other)
  Sender: FDA-Public Use
  Company Number: US-PFIZER INC-2012060045

PATIENT
  Sex: Male
  Weight: 79 kg

DRUGS (3)
  1. LEVOTHYROXINE [Concomitant]
     Indication: THYROID DISORDER
     Dosage: 25 MG, DAILY
  2. LEVOTHYROXINE [Concomitant]
     Dosage: 75 MG, DAILY
  3. PROTONIX [Suspect]
     Indication: GASTROOESOPHAGEAL REFLUX DISEASE
     Dosage: 40 MG, DAILY
     Dates: start: 20050101

REACTIONS (2)
  - NEOPLASM MALIGNANT [None]
  - LUNG NEOPLASM MALIGNANT [None]
